FAERS Safety Report 21770348 (Version 2)
Quarter: 2023Q1

REPORT INFORMATION
  Report Type: Spontaneous
  Country: JP (occurrence: JP)
  Receive Date: 20221223
  Receipt Date: 20230202
  Transmission Date: 20230417
  Serious: Yes (Other)
  Sender: FDA-Public Use
  Company Number: JP-ADVANZ PHARMA-202212008853

PATIENT

DRUGS (4)
  1. HYDROXYCHLOROQUINE SULFATE [Suspect]
     Active Substance: HYDROXYCHLOROQUINE SULFATE
     Indication: Systemic lupus erythematosus
     Dosage: 400 MG, QD (FILM-COATED TABLET)
     Route: 048
     Dates: start: 20221029, end: 20221116
  2. PREDNISOLONE [Concomitant]
     Active Substance: PREDNISOLONE
     Indication: Systemic lupus erythematosus
     Dosage: 4 MG, QD
     Route: 048
     Dates: start: 20170929
  3. SULFAMETHOXAZOLE\TRIMETHOPRIM [Concomitant]
     Active Substance: SULFAMETHOXAZOLE\TRIMETHOPRIM
     Indication: Prophylaxis
     Dosage: 1 DOSAGE FORM (ONCE (MONDAY, WEDNESDAY, FRIDAY))
     Route: 048
     Dates: start: 20120525
  4. MINODRONIC ACID [Concomitant]
     Active Substance: MINODRONIC ACID
     Indication: Systemic lupus erythematosus
     Dosage: 50 MG (EVERY 28 DAYS)
     Route: 048
     Dates: start: 20150313

REACTIONS (11)
  - Oculomucocutaneous syndrome [Recovered/Resolved]
  - Dermatitis exfoliative generalised [Recovered/Resolved]
  - Skin burning sensation [Recovered/Resolved]
  - Pain of skin [Recovered/Resolved]
  - Skin erosion [Recovered/Resolved]
  - Mucosal disorder [Recovered/Resolved]
  - Paraesthesia oral [Recovered/Resolved]
  - Lip erosion [Recovered/Resolved]
  - Nasal mucosal erosion [Recovered/Resolved]
  - Erythema [Recovered/Resolved]
  - Pruritus [Recovered/Resolved]

NARRATIVE: CASE EVENT DATE: 20221001
